FAERS Safety Report 7029979-9 (Version None)
Quarter: 2010Q4

REPORT INFORMATION
  Report Type: 
  Country: None (occurrence: None)
  Receive Date: 20101006
  Receipt Date: 20100930
  Transmission Date: 20110411
  Serious: Yes (Hospitalization)
  Sender: FDA-Public Use
  Company Number: JP-BAYER-201038717GPV

PATIENT
  Age: 67 Year
  Sex: Male

DRUGS (7)
  1. SORAFENIB [Suspect]
     Indication: HEPATIC NEOPLASM MALIGNANT
     Dosage: TOTAL DAILY DOSE: 800 MG  UNIT DOSE: 200 MG
     Route: 048
     Dates: start: 20100315
  2. OMEPRAL [Concomitant]
     Route: 065
  3. PROMAC [Concomitant]
     Route: 065
  4. MYSER [Concomitant]
     Route: 065
     Dates: start: 20100325
  5. ENTECAVIR [Concomitant]
     Route: 065
     Dates: start: 20081006
  6. HIRUDOID [Concomitant]
     Route: 065
     Dates: start: 20100315
  7. PASTARON [Concomitant]
     Route: 065
     Dates: start: 20100315

REACTIONS (1)
  - GASTRIC ANTRAL VASCULAR ECTASIA [None]
